FAERS Safety Report 4826302-2 (Version None)
Quarter: 2005Q4

REPORT INFORMATION
  Report Type: 
  Country: None (occurrence: None)
  Receive Date: 20051109
  Receipt Date: 20051029
  Transmission Date: 20060501
  Serious: Yes (Other)
  Sender: FDA-Public Use
  Company Number: 2005126644

PATIENT
  Age: 50 Year
  Sex: Female
  Weight: 52.1637 kg

DRUGS (7)
  1. ZOLOFT [Suspect]
     Indication: DEPRESSION
     Dosage: 150 MG (100 MG, 1 IN 1 D), ORAL
     Route: 048
     Dates: start: 20030101, end: 20050101
  2. TAMOXIFEN CITRATE [Suspect]
     Indication: BREAST CANCER
     Dates: end: 20040101
  3. WELLBUTRIN [Suspect]
     Indication: DEPRESSION
     Dosage: 400 MG (400 MG, 1 IN 1 D)
     Dates: start: 20030101, end: 20050101
  4. CYMBALTA [Suspect]
     Indication: DEPRESSION
     Dates: start: 20041001, end: 20050101
  5. LEVOTHYROXINE SODIUM [Concomitant]
  6. VALTREX [Concomitant]
  7. MINOCIN [Concomitant]

REACTIONS (6)
  - BREAST CANCER FEMALE [None]
  - CONDITION AGGRAVATED [None]
  - DEPRESSION [None]
  - ECONOMIC PROBLEM [None]
  - HAEMATOMA [None]
  - LETHARGY [None]
